FAERS Safety Report 9786435 (Version 2)
Quarter: 2014Q1

REPORT INFORMATION
  Report Type: Spontaneous
  Country: SE (occurrence: SE)
  Receive Date: 20131227
  Receipt Date: 20140224
  Transmission Date: 20141002
  Serious: Yes (Hospitalization)
  Sender: FDA-Public Use
  Company Number: SE-TEVA-452646ISR

PATIENT
  Age: 69 Year
  Sex: Female

DRUGS (3)
  1. DIMOR [Suspect]
     Indication: DIARRHOEA
  2. BEHEPAN [Concomitant]
  3. VITAKALK [Concomitant]

REACTIONS (2)
  - Muscle spasms [Recovered/Resolved]
  - Paraesthesia [Recovered/Resolved]
